FAERS Safety Report 21070117 (Version 1)
Quarter: 2022Q3

REPORT INFORMATION
  Report Type: Spontaneous
  Country: US (occurrence: US)
  Receive Date: 20220712
  Receipt Date: 20220712
  Transmission Date: 20221027
  Serious: Yes (Other)
  Sender: FDA-Public Use
  Company Number: US-PFIZER INC-202200944766

PATIENT
  Age: 47 Year
  Sex: Female

DRUGS (1)
  1. EPINEPHRINE [Suspect]
     Active Substance: EPINEPHRINE
     Dosage: UNK
     Dates: start: 1994

REACTIONS (2)
  - Brain oedema [Unknown]
  - Urticaria [Unknown]

NARRATIVE: CASE EVENT DATE: 19940101
